FAERS Safety Report 9528280 (Version 1)
Quarter: 2013Q3

REPORT INFORMATION
  Report Type: Spontaneous
  Country: US (occurrence: US)
  Receive Date: 20130917
  Receipt Date: 20130917
  Transmission Date: 20140515
  Serious: Yes (Hospitalization)
  Sender: FDA-Public Use
  Company Number: US-BAYER-2013-112018

PATIENT
  Age: 45 Year
  Sex: Female

DRUGS (1)
  1. YAZ [Suspect]
     Indication: ENDOMETRIOSIS

REACTIONS (1)
  - Pulmonary embolism [None]
